FAERS Safety Report 4439836-X (Version None)
Quarter: 2004Q3

REPORT INFORMATION
  Report Type: 
  Country: None (occurrence: None)
  Receive Date: 20040902
  Receipt Date: 20040818
  Transmission Date: 20050211
  Serious: Yes (Other)
  Sender: FDA-Public Use
  Company Number: US-JNJFOC-20040703711

PATIENT
  Sex: Female
  Weight: 140.62 kg

DRUGS (5)
  1. LEVAQUIN [Suspect]
     Dates: start: 20040527, end: 20040605
  2. LEVAQUIN [Suspect]
     Indication: URINARY TRACT INFECTION
     Dates: start: 20040527, end: 20040605
  3. PROZAC [Concomitant]
  4. ATENOLOL [Concomitant]
  5. LORAZEPAM [Concomitant]

REACTIONS (11)
  - ABDOMINAL PAIN [None]
  - ANXIETY [None]
  - ARTHRALGIA [None]
  - DIFFICULTY IN WALKING [None]
  - FATIGUE [None]
  - FLATULENCE [None]
  - HYPOAESTHESIA [None]
  - MYALGIA [None]
  - PRURITUS [None]
  - SYSTEMIC LUPUS ERYTHEMATOSUS [None]
  - TINNITUS [None]
